FAERS Safety Report 5214828-1 (Version None)
Quarter: 2007Q1

REPORT INFORMATION
  Report Type: 
  Country: None (occurrence: None)
  Receive Date: 20070122
  Receipt Date: 20070112
  Transmission Date: 20070707
  Serious: Yes (Death)
  Sender: FDA-Public Use
  Company Number: ZW-BOEHRINGER INGELHEIM GMBH, GERMANY-2006-DE-01807GD

PATIENT

DRUGS (2)
  1. NEVIRAPINE [Suspect]
     Indication: PROPHYLAXIS
     Route: 015
  2. NEVIRAPINE [Suspect]
     Indication: HUMAN IMMUNODEFICIENCY VIRUS TRANSMISSION
     Route: 048

REACTIONS (3)
  - DEATH [None]
  - HIV TEST POSITIVE [None]
  - VIRAL MUTATION IDENTIFIED [None]
